FAERS Safety Report 18183570 (Version 2)
Quarter: 2020Q3

REPORT INFORMATION
  Report Type: Report from Study
  Country: CL (occurrence: CL)
  Receive Date: 20200822
  Receipt Date: 20200829
  Transmission Date: 20201103
  Serious: Yes (Death)
  Sender: FDA-Public Use
  Company Number: NVSC2020CL232267

PATIENT
  Sex: Female

DRUGS (1)
  1. KISQALI [Suspect]
     Active Substance: RIBOCICLIB
     Indication: BREAST CANCER
     Dosage: 600 MG, QW3 (FOR 21 DAYS AND 7 DAYS REST)
     Route: 048
     Dates: start: 20200731

REACTIONS (2)
  - Cerebrovascular accident [Fatal]
  - Aneurysm [Fatal]
